FAERS Safety Report 5464844-X (Version None)
Quarter: 2007Q3

REPORT INFORMATION
  Report Type: 
  Country: None (occurrence: None)
  Receive Date: 20070921
  Receipt Date: 20070911
  Transmission Date: 20080115
  Serious: Yes (Hospitalization, Other)
  Sender: FDA-Public Use
  Company Number: US-PFIZER INC-2007076267

PATIENT
  Age: 62 Year
  Sex: Female

DRUGS (2)
  1. PREDNISONE TABLET [Suspect]
     Dosage: DAILY DOSE:4MG
     Route: 048
  2. ETANERCEPT [Suspect]
     Indication: RHEUMATOID ARTHRITIS
     Dosage: DAILY DOSE:50MG
     Route: 058

REACTIONS (2)
  - ERYSIPELAS [None]
  - LYMPHOEDEMA [None]
